FAERS Safety Report 8805350 (Version 1)
Quarter: 2012Q4

REPORT INFORMATION
  Report Type: 
  Country: IT (occurrence: IT)
  Receive Date: 20120924
  Receipt Date: 20120924
  Transmission Date: 20130627
  Serious: Yes (Hospitalization)
  Sender: FDA-Public Use
  Company Number: IT-ROCHE-1134708

PATIENT
  Age: 75 Year
  Sex: Male

DRUGS (3)
  1. MABTHERA [Suspect]
     Indication: LYMPHOCYTIC LEUKAEMIA
     Route: 041
     Dates: start: 20120128, end: 20120128
  2. TACHIPIRINA [Concomitant]
     Route: 048
     Dates: start: 20120128, end: 20120128
  3. TRIMETON [Concomitant]
     Route: 042
     Dates: start: 20120128, end: 20120128

REACTIONS (4)
  - Dyspnoea [Recovered/Resolved]
  - Hypertension [Recovered/Resolved]
  - Rales [Recovered/Resolved]
  - Infusion related reaction [Recovered/Resolved]
